FAERS Safety Report 14519908 (Version 2)
Quarter: 2018Q1

REPORT INFORMATION
  Report Type: Report from Study
  Country: US (occurrence: US)
  Receive Date: 20180212
  Receipt Date: 20180215
  Transmission Date: 20180509
  Serious: Yes (Death, Life-Threatening, Hospitalization)
  Sender: FDA-Public Use
  Company Number: US-ASTRAZENECA-2016SE81069

PATIENT
  Age: 65 Year
  Sex: Male
  Weight: 171.2 kg

DRUGS (45)
  1. MELATONIN [Concomitant]
     Active Substance: MELATONIN
     Dosage: 3 MG TABLET
     Route: 065
  2. PEMBROLIZUMAB. [Suspect]
     Active Substance: PEMBROLIZUMAB
     Indication: DIFFUSE LARGE B-CELL LYMPHOMA
     Route: 042
     Dates: start: 20160608, end: 20160629
  3. ATENOLOL. [Concomitant]
     Active Substance: ATENOLOL
     Indication: HYPERTENSION
     Route: 048
     Dates: start: 20041208
  4. LANTUS [Concomitant]
     Active Substance: INSULIN GLARGINE
     Indication: DIABETES MELLITUS
     Dosage: AS NEEDED
     Route: 058
     Dates: start: 20160106
  5. TYLENOL [Concomitant]
     Active Substance: ACETAMINOPHEN
     Indication: PAIN
     Dosage: AS NEEDED
     Route: 048
     Dates: start: 20160106
  6. INSULIN GLARGINE [Concomitant]
     Active Substance: INSULIN GLARGINE
     Dosage: (LANTUS SOLOSTAR PEN) 100 UNITLML (3 ML) SOLU1ION FOR INJECTION
     Route: 065
  7. KETOROLAC [Concomitant]
     Active Substance: KETOROLAC\KETOROLAC TROMETHAMINE
     Dosage: 0.5% OPHTHALMIC (ACULAR) SOLUTION
  8. PANTOPRAZOLE [Concomitant]
     Active Substance: PANTOPRAZOLE
     Indication: GASTROOESOPHAGEAL REFLUX DISEASE
     Route: 048
     Dates: start: 20160523, end: 20160525
  9. SIMETHICONE (DIMETHICONE) [Concomitant]
     Active Substance: DIMETHICONE
     Dosage: 125 MG CAPSULE
     Route: 065
  10. TERAZOSIN HYDROCHLORIDE. [Concomitant]
     Active Substance: TERAZOSIN HYDROCHLORIDE
     Indication: HYPERTENSION
     Route: 065
     Dates: start: 20160106
  11. TERAZOSIN [Concomitant]
     Active Substance: TERAZOSIN\TERAZOSIN HYDROCHLORIDE
     Indication: HYPERTENSION
     Route: 048
     Dates: start: 20160106
  12. ACALABRUTINIB. [Suspect]
     Active Substance: ACALABRUTINIB
     Indication: DIFFUSE LARGE B-CELL LYMPHOMA
     Route: 048
     Dates: start: 20160706
  13. ACETAMINOPHEN. [Concomitant]
     Active Substance: ACETAMINOPHEN
     Dosage: 500 MG
     Route: 065
  14. ALLOPURINOL. [Concomitant]
     Active Substance: ALLOPURINOL
     Indication: BLOOD URIC ACID DECREASED
     Route: 048
     Dates: start: 20160106
  15. DIFLUPREDNATE [Concomitant]
     Active Substance: DIFLUPREDNATE
     Dosage: 0.05% OPHTHALMIC EMULSION
  16. FENOFIBRATE NANOCRYSTALLIZED [Concomitant]
     Indication: BLOOD CHOLESTEROL DECREASED
     Route: 048
     Dates: start: 20160106
  17. INSULIN ASPART [Concomitant]
     Active Substance: INSULIN ASPART
     Dosage: 100 UNITLML SOLUTION FOR INJECTION
     Route: 065
  18. VENLAFAXINE [Concomitant]
     Active Substance: VENLAFAXINE HYDROCHLORIDE
     Indication: DEPRESSION
     Route: 065
  19. KETOROLAC [Concomitant]
     Active Substance: KETOROLAC\KETOROLAC TROMETHAMINE
     Indication: CATARACT OPERATION
     Route: 047
     Dates: start: 20160523
  20. ZETIA [Concomitant]
     Active Substance: EZETIMIBE
     Indication: BLOOD CHOLESTEROL
     Route: 048
     Dates: start: 20160106
  21. ACALABRUTINIB. [Suspect]
     Active Substance: ACALABRUTINIB
     Indication: DIFFUSE LARGE B-CELL LYMPHOMA
     Route: 048
     Dates: start: 20160707
  22. ACALABRUTINIB. [Suspect]
     Active Substance: ACALABRUTINIB
     Indication: DIFFUSE LARGE B-CELL LYMPHOMA
     Route: 048
     Dates: start: 20160708, end: 20160708
  23. EZETIMIBE. [Concomitant]
     Active Substance: EZETIMIBE
     Route: 065
  24. NITROGLYCERIN. [Concomitant]
     Active Substance: NITROGLYCERIN
     Dosage: 0.4 MG
     Route: 060
  25. OFLOXACIN. [Concomitant]
     Active Substance: OFLOXACIN
     Indication: ANTIBIOTIC PROPHYLAXIS
     Dosage: 0.3% OPHTHALMIC (OCUFLOX) 0.3% OPHLHALMIC SOLUTION EVERY 6 HOURS
     Route: 047
     Dates: start: 20160523
  26. MULTIVITAMIN [Concomitant]
     Active Substance: VITAMINS
     Indication: SUPPLEMENTATION THERAPY
     Route: 048
     Dates: start: 20060324
  27. PRAVASTATIN. [Concomitant]
     Active Substance: PRAVASTATIN
     Indication: BLOOD CHOLESTEROL DECREASED
     Route: 048
     Dates: start: 20160106
  28. ZOLPIDEM [Concomitant]
     Active Substance: ZOLPIDEM\ZOLPIDEM TARTRATE
     Dosage: 1 0 MG TABLET
     Route: 065
  29. OFLOXACIN. [Concomitant]
     Active Substance: OFLOXACIN
     Indication: PROPHYLAXIS
     Dosage: EVERY SIX HOURS
     Route: 047
     Dates: start: 20160523
  30. PANTOPRAZOLE [Concomitant]
     Active Substance: PANTOPRAZOLE
     Indication: GASTROOESOPHAGEAL REFLUX DISEASE
     Route: 048
     Dates: start: 20160523, end: 20160525
  31. VENLAFAXINE [Concomitant]
     Active Substance: VENLAFAXINE HYDROCHLORIDE
     Indication: DEPRESSION
     Route: 048
     Dates: start: 20160129
  32. ACALABRUTINIB. [Suspect]
     Active Substance: ACALABRUTINIB
     Indication: DIFFUSE LARGE B-CELL LYMPHOMA
     Route: 048
     Dates: start: 20160608
  33. ASPIRIN. [Concomitant]
     Active Substance: ASPIRIN
     Indication: NUTRITIONAL SUPPLEMENTATION
     Route: 048
     Dates: start: 20041208
  34. LORAZEPAM. [Concomitant]
     Active Substance: LORAZEPAM
     Route: 065
  35. RANITIDINE. [Concomitant]
     Active Substance: RANITIDINE
     Dosage: 300 MG TABLET
     Route: 065
  36. NOVOLOG [Concomitant]
     Active Substance: INSULIN ASPART
     Indication: DIABETES MELLITUS
     Route: 058
     Dates: start: 20160106
  37. PRAVASTATIN. [Concomitant]
     Active Substance: PRAVASTATIN
     Indication: BLOOD CHOLESTEROL
     Route: 048
     Dates: start: 20160106
  38. ACALABRUTINIB. [Suspect]
     Active Substance: ACALABRUTINIB
     Indication: DIFFUSE LARGE B-CELL LYMPHOMA
     Route: 048
     Dates: start: 20160706
  39. ACALABRUTINIB. [Suspect]
     Active Substance: ACALABRUTINIB
     Indication: DIFFUSE LARGE B-CELL LYMPHOMA
     Route: 048
     Dates: start: 20160707
  40. ACALABRUTINIB. [Suspect]
     Active Substance: ACALABRUTINIB
     Indication: DIFFUSE LARGE B-CELL LYMPHOMA
     Route: 048
     Dates: start: 20160708
  41. LISINOPRIL. [Concomitant]
     Active Substance: LISINOPRIL
     Indication: HYPERTENSION
     Route: 048
     Dates: start: 20041208
  42. MULTIVITAMIN WITH MINERALS [Concomitant]
     Active Substance: MINERALS\VITAMINS
     Indication: NUTRITIONAL SUPPLEMENTATION
     Route: 048
     Dates: start: 20050324
  43. POTASSIUM CHLORIDE. [Concomitant]
     Active Substance: POTASSIUM CHLORIDE
     Indication: NUTRITIONAL SUPPLEMENTATION
     Route: 048
     Dates: start: 20160106
  44. LISINOPRIL. [Concomitant]
     Active Substance: LISINOPRIL
     Indication: HYPERTENSION
     Route: 048
     Dates: start: 20041208
  45. POTASSIUM [Concomitant]
     Active Substance: POTASSIUM
     Indication: SUPPLEMENTATION THERAPY
     Route: 048
     Dates: start: 20160106

REACTIONS (1)
  - Pancreatitis [Recovered/Resolved]

NARRATIVE: CASE EVENT DATE: 20160709
